FAERS Safety Report 24124877 (Version 1)
Quarter: 2024Q3

REPORT INFORMATION
  Report Type: Spontaneous
  Country: US (occurrence: US)
  Receive Date: 20240723
  Receipt Date: 20240723
  Transmission Date: 20241017
  Serious: Yes (Other)
  Sender: Haleon PLC
  Company Number: US-HALEON-2187826

PATIENT
  Age: 44 Year
  Sex: Male

DRUGS (1)
  1. ACETAMINOPHEN [Suspect]
     Active Substance: ACETAMINOPHEN
     Indication: Product used for unknown indication
     Dosage: TOOK 40 TABLETS OF APAP OVER THE PAST 1-2 DAYS

REACTIONS (5)
  - Acute hepatic failure [Recovering/Resolving]
  - Overdose [Unknown]
  - Agitation [Unknown]
  - Tachycardia [Unknown]
  - Jaundice [Unknown]
